FAERS Safety Report 13646903 (Version 1)
Quarter: 2017Q2

REPORT INFORMATION
  Report Type: Spontaneous
  Country: US (occurrence: US)
  Receive Date: 20170612
  Receipt Date: 20170612
  Transmission Date: 20170830
  Serious: Yes (Hospitalization)
  Sender: FDA-Public Use
  Company Number: None

PATIENT
  Age: 58 Year
  Sex: Female
  Weight: 65 kg

DRUGS (2)
  1. SEPHB4-HSA LAST DOSE 6/9/17 [Suspect]
     Active Substance: INVESTIGATIONAL PRODUCT
     Indication: NON-SMALL CELL LUNG CANCER
     Dosage: 10MG/KG D1, D3 AND D15 Q 21 D IV
     Route: 042
     Dates: start: 20170426, end: 20170609
  2. PEMBROLIZUMAB LAST DOSE 6/9/17 [Suspect]
     Active Substance: PEMBROLIZUMAB
     Indication: NON-SMALL CELL LUNG CANCER
     Dosage: 200 MG D1 Q 21 DAYS IV
     Route: 042
     Dates: start: 20170426, end: 20170609

REACTIONS (2)
  - Hypertension [None]
  - Ischaemic stroke [None]

NARRATIVE: CASE EVENT DATE: 20170609
